FAERS Safety Report 7057932-8 (Version None)
Quarter: 2010Q4

REPORT INFORMATION
  Report Type: 
  Country: None (occurrence: None)
  Receive Date: 20101021
  Receipt Date: 20101021
  Transmission Date: 20110411
  Serious: Yes (Other)
  Sender: FDA-Public Use
  Company Number: None

PATIENT
  Sex: Female
  Weight: 54.4316 kg

DRUGS (1)
  1. LOESTRIN 24 FE [Suspect]
     Indication: CONTRACEPTION
     Dosage: 20 MICROGRAMS 1/DAY PO
     Route: 048
     Dates: start: 20070715, end: 20101001

REACTIONS (1)
  - IRRITABLE BOWEL SYNDROME [None]
